FAERS Safety Report 8440634-0 (Version None)
Quarter: 2012Q2

REPORT INFORMATION
  Report Type: 
  Country: None (occurrence: None)
  Receive Date: 20120615
  Receipt Date: 20120608
  Transmission Date: 20120825
  Serious: Yes (Hospitalization, Disabling, Other)
  Sender: FDA-Public Use
  Company Number: US-MERCK-1103USA00996

PATIENT
  Age: 61 Year
  Sex: Female

DRUGS (11)
  1. FOSAMAX [Suspect]
     Indication: OSTEOPOROSIS PROPHYLAXIS
     Route: 048
     Dates: start: 19980701, end: 20001001
  2. FOSAMAX [Suspect]
     Route: 048
     Dates: start: 20080201, end: 20100601
  3. ALENDRONATE SODIUM [Suspect]
     Indication: OSTEOPOROSIS
     Route: 065
  4. FOSAMAX [Suspect]
     Route: 048
     Dates: start: 20001001, end: 20080201
  5. FOSAMAX [Suspect]
     Route: 048
     Dates: start: 20080201, end: 20100601
  6. VITAMINS (UNSPECIFIED) [Concomitant]
     Route: 048
     Dates: start: 19900101
  7. FOSAMAX [Suspect]
     Indication: OSTEOPOROSIS
     Route: 048
     Dates: start: 19980701, end: 20001001
  8. OMEGA-3 MARINE TRIGLYCERIDES [Concomitant]
     Route: 048
     Dates: start: 19900101
  9. CALCIUM (UNSPECIFIED) AND VITAMIN D (UNSPECIFIED) [Concomitant]
     Route: 048
     Dates: start: 19900101
  10. FOSAMAX [Suspect]
     Route: 048
     Dates: start: 20001001, end: 20080201
  11. HORMONES (UNSPECIFIED) [Concomitant]
     Route: 048
     Dates: start: 19970101, end: 20020101

REACTIONS (8)
  - IMPAIRED HEALING [None]
  - BLOOD CHOLESTEROL INCREASED [None]
  - FEMUR FRACTURE [None]
  - STRESS FRACTURE [None]
  - ADVERSE EVENT [None]
  - DIABETES MELLITUS [None]
  - OSTEOPOROSIS [None]
  - LOW TURNOVER OSTEOPATHY [None]
